FAERS Safety Report 7567985-6 (Version None)
Quarter: 2011Q2

REPORT INFORMATION
  Report Type: 
  Country: None (occurrence: None)
  Receive Date: 20110616
  Receipt Date: 20110607
  Transmission Date: 20111010
  Serious: Yes (Death)
  Sender: FDA-Public Use
  Company Number: US_2011-10366

PATIENT
  Age: 7 Year
  Sex: Male

DRUGS (7)
  1. COLONY STIMULATING FACTORS [Concomitant]
  2. CYCLOSPORINE [Concomitant]
  3. PREDNISONE [Concomitant]
  4. GLOBULIN (IMMUNOGLOBULIN) [Concomitant]
  5. CYCLOPHOSPHAMIDE [Suspect]
     Indication: STEM CELL TRANSPLANT
     Dosage: 120 MG/KG,
  6. BUSULFEX [Suspect]
     Indication: STEM CELL TRANSPLANT
     Dosage: 16 MG/KG, INTRAVENOUS
     Route: 042
  7. MELPHALAN HYDROCHLORIDE [Suspect]
     Indication: STEM CELL TRANSPLANT
     Dosage: 140 MG/M2,

REACTIONS (4)
  - NEUTROPENIA [None]
  - DRUG RESISTANCE [None]
  - SEPSIS [None]
  - ACUTE GRAFT VERSUS HOST DISEASE [None]
